FAERS Safety Report 6109510-2 (Version None)
Quarter: 2009Q1

REPORT INFORMATION
  Report Type: 
  Country: None (occurrence: None)
  Receive Date: 20090310
  Receipt Date: 20090226
  Transmission Date: 20090719
  Serious: Yes (Disabling)
  Sender: FDA-Public Use
  Company Number: US-ELI_LILLY_AND_COMPANY-US200902007810

PATIENT
  Age: 59 Year
  Sex: Male

DRUGS (1)
  1. CIALIS [Suspect]
     Dosage: UNK, AS NEEDED
     Route: 065

REACTIONS (2)
  - ABASIA [None]
  - BACK PAIN [None]
